FAERS Safety Report 24677163 (Version 2)
Quarter: 2025Q2

REPORT INFORMATION
  Report Type: Spontaneous
  Country: ZA (occurrence: ZA)
  Receive Date: 20241129
  Receipt Date: 20250418
  Transmission Date: 20250716
  Serious: Yes (Other)
  Sender: AMGEN
  Company Number: ZA-AMGEN-ZAFSP2024231282

PATIENT
  Sex: Male

DRUGS (4)
  1. ADALIMUMAB [Suspect]
     Active Substance: ADALIMUMAB
     Indication: Product used for unknown indication
     Dosage: 40 MILLIGRAM, Q2WK
     Route: 065
     Dates: start: 202305, end: 202412
  2. PREDNISONE [Concomitant]
     Active Substance: PREDNISONE
     Dosage: 20 MILLIGRAM, QD
     Dates: start: 202304, end: 202305
  3. METHOTREXATE [Concomitant]
     Active Substance: METHOTREXATE
     Dosage: 15 MILLIGRAM, QWK
     Dates: start: 202205
  4. ETORICOXIB [Concomitant]
     Active Substance: ETORICOXIB
     Dosage: 60 MILLIGRAM, QD
     Dates: start: 202205

REACTIONS (6)
  - Idiopathic intracranial hypertension [Unknown]
  - Iridocyclitis [Unknown]
  - Sacroiliitis [Unknown]
  - Bone marrow oedema [Unknown]
  - Enthesopathy [Unknown]
  - Upper respiratory tract infection [Unknown]
